FAERS Safety Report 6448149-6 (Version None)
Quarter: 2009Q4

REPORT INFORMATION
  Report Type: 
  Country: None (occurrence: None)
  Receive Date: 20091120
  Receipt Date: 20091117
  Transmission Date: 20100525
  Serious: Yes (Other)
  Sender: FDA-Public Use
  Company Number: GB-SANOFI-AVENTIS-2009SA002690

PATIENT
  Age: 12 Year
  Sex: Male

DRUGS (3)
  1. LANTUS [Suspect]
  2. HUMALOG [Suspect]
  3. ACETAMINOPHEN [Suspect]
     Route: 048

REACTIONS (3)
  - ABDOMINAL PAIN UPPER [None]
  - BACK PAIN [None]
  - DIABETES MELLITUS [None]
